FAERS Safety Report 13516330 (Version 1)
Quarter: 2017Q2

REPORT INFORMATION
  Report Type: Spontaneous
  Country: FR (occurrence: FR)
  Receive Date: 20170505
  Receipt Date: 20170505
  Transmission Date: 20170830
  Serious: Yes (Other)
  Sender: FDA-Public Use
  Company Number: FR-009507513-1705FRA000107

PATIENT
  Age: 43 Year
  Sex: Female

DRUGS (2)
  1. DEROXAT [Concomitant]
     Active Substance: PAROXETINE HYDROCHLORIDE
     Dosage: UNK
  2. NEXPLANON [Suspect]
     Active Substance: ETONOGESTREL
     Indication: CONTRACEPTION
     Dosage: SUBCUTANEOUS IMPLANT, ONCE EVERY 3 YEARS
     Route: 058
     Dates: start: 201609, end: 20170201

REACTIONS (3)
  - Decreased appetite [Unknown]
  - Affective disorder [Unknown]
  - Weight decreased [Unknown]
